FAERS Safety Report 5628099-5 (Version None)
Quarter: 2008Q1

REPORT INFORMATION
  Report Type: 
  Country: None (occurrence: None)
  Receive Date: 20080215
  Receipt Date: 20080206
  Transmission Date: 20080703
  Serious: Yes (Death, Hospitalization)
  Sender: FDA-Public Use
  Company Number: ES-ELI_LILLY_AND_COMPANY-ES200802002040

PATIENT
  Age: 77 Year
  Sex: Female

DRUGS (8)
  1. FORTEO [Suspect]
     Indication: DEPRESSION
     Dosage: 20 UG, DAILY (1/D)
     Route: 058
     Dates: start: 20071201
  2. ANTIHYPERTENSIVES [Concomitant]
     Indication: HYPERTENSION
  3. ANTI-DIABETICS [Concomitant]
     Indication: DIABETES MELLITUS
  4. DIURETICS [Concomitant]
  5. LAXATIVE [Concomitant]
  6. CALCIUM [Concomitant]
  7. OXYGEN [Concomitant]
     Dosage: UNK, 16-18 HRS/DAY
  8. ANALGESICS [Concomitant]
     Indication: PAIN

REACTIONS (1)
  - GENERAL PHYSICAL HEALTH DETERIORATION [None]
